FAERS Safety Report 8141724-2 (Version None)
Quarter: 2012Q1

REPORT INFORMATION
  Report Type: 
  Country: None (occurrence: None)
  Receive Date: 20120216
  Receipt Date: 20120206
  Transmission Date: 20120608
  Serious: Yes (Hospitalization, Other)
  Sender: FDA-Public Use
  Company Number: FR-ABBOTT-12P-056-0899967-03

PATIENT
  Sex: Female

DRUGS (20)
  1. TINZAPARIN SODIUM [Concomitant]
     Indication: THROMBOSIS PROPHYLAXIS
     Dates: start: 20110620, end: 20110630
  2. HUMIRA [Suspect]
     Indication: CROHN'S DISEASE
     Dosage: BASELINE
     Route: 058
     Dates: start: 20090312, end: 20090312
  3. HUMIRA [Suspect]
     Route: 058
     Dates: start: 20100709, end: 20100709
  4. CERNEVIT-12 [Concomitant]
     Indication: VITAMIN SUPPLEMENTATION
     Dosage: 2 BOTTLES
     Dates: start: 20110620, end: 20110720
  5. TRAMADOL HCL [Concomitant]
     Indication: PAIN
     Dates: start: 20110620, end: 20110720
  6. MORPHINE SULFATE [Concomitant]
     Indication: PAIN
     Dates: start: 20110625, end: 20110724
  7. AUGMENTIN '125' [Concomitant]
     Indication: ANTIBIOTIC THERAPY
     Dates: start: 20110710, end: 20110725
  8. HUMIRA [Suspect]
     Route: 058
     Dates: start: 20100723, end: 20100723
  9. NICORETTE [Concomitant]
     Indication: EX-TOBACCO USER
     Dates: start: 20110620
  10. TEMAZEPAM [Concomitant]
     Indication: MUSCLE RELAXANT THERAPY
     Dates: start: 20110620, end: 20110720
  11. HUMIRA [Suspect]
     Dosage: WEEK 2
     Route: 058
  12. HUMIRA [Suspect]
     Route: 058
  13. SPASFON [Concomitant]
     Dates: start: 20110507
  14. PARACETAMOL [Concomitant]
     Indication: PAIN
     Dates: start: 20110620, end: 20110720
  15. HUMIRA [Suspect]
     Route: 058
     Dates: start: 20100806
  16. HUMIRA [Suspect]
     Route: 058
     Dates: start: 20100917, end: 20110601
  17. SOMATULINE DEPOT [Concomitant]
     Indication: HYPERCHLORHYDRIA
     Dates: start: 20110620, end: 20110720
  18. SPASFON [Concomitant]
     Indication: GASTROINTESTINAL PAIN
     Dates: start: 20110620, end: 20110720
  19. OFLOXACIN [Concomitant]
     Indication: ANTIBIOTIC THERAPY
     Dates: start: 20110710, end: 20110724
  20. KARBIVEN [Concomitant]
     Indication: PARENTERAL NUTRITION
     Dates: start: 20110620, end: 20110720

REACTIONS (5)
  - ENTEROCUTANEOUS FISTULA [None]
  - PYREXIA [None]
  - CHILLS [None]
  - ABDOMINAL PAIN [None]
  - STAPHYLOCOCCAL SEPSIS [None]
